FAERS Safety Report 21294215 (Version 1)
Quarter: 2022Q3

REPORT INFORMATION
  Report Type: Report from Study
  Country: US (occurrence: US)
  Receive Date: 20220905
  Receipt Date: 20220905
  Transmission Date: 20221027
  Serious: No
  Sender: FDA-Public Use
  Company Number: US-NOVARTISTESTPH-NVSC2022US199617

PATIENT
  Sex: Male

DRUGS (1)
  1. COSENTYX [Suspect]
     Active Substance: SECUKINUMAB
     Indication: Product used for unknown indication
     Dosage: UNK UNK, QMO (2 PENS ONCE A MONTH, PATIENT WAS NOT SURE)
     Route: 058

REACTIONS (6)
  - Psoriasis [Not Recovered/Not Resolved]
  - Nail disorder [Unknown]
  - Hyperkeratosis [Unknown]
  - Ear infection [Unknown]
  - Skin exfoliation [Unknown]
  - Abdominal distension [Unknown]
